FAERS Safety Report 8560141-4 (Version None)
Quarter: 2012Q3

REPORT INFORMATION
  Report Type: 
  Country: None (occurrence: None)
  Receive Date: 20120802
  Receipt Date: 20120724
  Transmission Date: 20120928
  Serious: Yes (Other)
  Sender: FDA-Public Use
  Company Number: CH-SANOFI-AVENTIS-2012SA052411

PATIENT
  Age: 27 Year
  Sex: Female

DRUGS (3)
  1. ZOLPIDEM TARTRATE [Suspect]
     Route: 065
     Dates: start: 20120406
  2. CLORAZEPATE DIPOTASSIUM [Suspect]
     Indication: INSOMNIA
     Route: 065
     Dates: start: 20120406
  3. ZYPREXA [Suspect]
     Indication: PERSONALITY DISORDER
     Route: 065
     Dates: start: 20110901

REACTIONS (1)
  - MATERNAL EXPOSURE DURING PREGNANCY [None]
